FAERS Safety Report 6209079-8 (Version None)
Quarter: 2009Q2

REPORT INFORMATION
  Report Type: 
  Country: None (occurrence: None)
  Receive Date: 20090529
  Receipt Date: 20090522
  Transmission Date: 20091009
  Serious: Yes (Hospitalization)
  Sender: FDA-Public Use
  Company Number: US-BIOGENIDEC-2009BI015851

PATIENT
  Age: 30 Year
  Sex: Male
  Weight: 72 kg

DRUGS (8)
  1. TYSABRI [Suspect]
     Indication: CROHN'S DISEASE
     Route: 042
     Dates: start: 20090108
  2. AUGMENTIN '125' [Concomitant]
     Route: 048
     Dates: start: 20090513
  3. PERCOCET [Concomitant]
     Indication: PAIN
     Dates: start: 20090513
  4. CALCIUM [Concomitant]
     Indication: SUPPLEMENTATION THERAPY
  5. MULTI-VITAMIN [Concomitant]
     Indication: ROUTINE HEALTH MAINTENANCE
  6. TRIAMCINOLONE [Concomitant]
  7. TYLENOL [Concomitant]
  8. ZANTAC [Concomitant]

REACTIONS (3)
  - ANAL STENOSIS [None]
  - PAIN [None]
  - SYNCOPE [None]
